FAERS Safety Report 8620790-1 (Version None)
Quarter: 2012Q3

REPORT INFORMATION
  Report Type: 
  Country: None (occurrence: None)
  Receive Date: 20120824
  Receipt Date: 20120801
  Transmission Date: 20120928
  Serious: Yes (Hospitalization)
  Sender: FDA-Public Use
  Company Number: DE-ROCHE-1076714

PATIENT
  Sex: Male
  Weight: 15.95 kg

DRUGS (8)
  1. MYCOPHENOLATE MEFETIL [Concomitant]
     Indication: IMMUNOSUPPRESSION
     Route: 048
     Dates: start: 20120611
  2. ATENOLOL [Concomitant]
     Indication: HYPERTENSION
     Route: 048
     Dates: start: 20120608
  3. VALCYTE [Suspect]
     Indication: RENAL TRANSPLANT
     Dosage: 300 MG WAS LAST DOSE PRIOR TO SAE ON 27/JUL/2012
     Route: 048
     Dates: start: 20120515
  4. SULFAMETHOXAZOLE TRIMETHOPRIM [Concomitant]
     Indication: PROPHYLAXIS
     Route: 048
     Dates: start: 20120515
  5. RAMIPRIL [Concomitant]
     Indication: HYPERTENSION
     Route: 048
     Dates: start: 20120611
  6. CYCLOSPORINE [Concomitant]
     Indication: IMMUNOSUPPRESSION
     Route: 048
     Dates: start: 20120609
  7. METHYLPREDNISOLONE [Concomitant]
     Indication: IMMUNOSUPPRESSION
     Route: 048
     Dates: start: 20120614
  8. NATRIUMHYDROGENCARBONAT [Concomitant]
     Indication: METABOLIC ACIDOSIS
     Route: 048
     Dates: start: 20120710

REACTIONS (3)
  - ORAL INFECTION [None]
  - ROTAVIRUS INFECTION [None]
  - NEUTROPENIA [None]
